FAERS Safety Report 5335036-X (Version None)
Quarter: 2007Q2

REPORT INFORMATION
  Report Type: 
  Country: None (occurrence: None)
  Receive Date: 20070525
  Receipt Date: 20070524
  Transmission Date: 20071010
  Serious: Yes (Other)
  Sender: FDA-Public Use
  Company Number: A0649702A

PATIENT
  Age: 16 Year
  Sex: Male
  Weight: 102 kg

DRUGS (10)
  1. ADVAIR DISKUS 100/50 [Suspect]
     Indication: DRUG USE FOR UNKNOWN INDICATION
     Route: 055
     Dates: start: 20070428, end: 20070501
  2. ADVAIR DISKUS 100/50 [Suspect]
     Route: 055
     Dates: start: 20050101, end: 20050101
  3. FLOVENT [Concomitant]
     Dosage: 2PUFF IN THE MORNING
     Route: 055
  4. PREVACID [Concomitant]
     Dosage: 30MG IN THE MORNING
     Route: 048
  5. SINGULAIR [Concomitant]
     Indication: ASTHMA
     Dosage: 10MG AT NIGHT
     Route: 048
  6. ZYRTEC [Concomitant]
     Dosage: 10MG AS REQUIRED
  7. NASONEX [Concomitant]
     Indication: MULTIPLE ALLERGIES
     Dosage: 4SPR PER DAY
     Route: 045
  8. ALBUTEROL [Concomitant]
     Indication: MULTIPLE ALLERGIES
     Dosage: 2PUFF AS REQUIRED
     Route: 055
  9. ALBUTEROL [Concomitant]
     Indication: ASTHMA
     Dosage: 1.25MG AS REQUIRED
     Route: 055
  10. PULMICORT [Concomitant]

REACTIONS (4)
  - EOSINOPHILIC OESOPHAGITIS [None]
  - HYPOTONIA [None]
  - RETCHING [None]
  - VOMITING [None]
